FAERS Safety Report 5314427-7 (Version None)
Quarter: 2007Q2

REPORT INFORMATION
  Report Type: 
  Country: None (occurrence: None)
  Receive Date: 20070430
  Receipt Date: 20070430
  Transmission Date: 20071010
  Serious: Yes (Other)
  Sender: FDA-Public Use
  Company Number: None

PATIENT
  Sex: Male
  Weight: 81.6475 kg

DRUGS (1)
  1. CYMBALTA [Suspect]
     Dosage: 60 MG ONCE DAILY ORAL
     Route: 048
     Dates: start: 20070426

REACTIONS (8)
  - ANXIETY [None]
  - DISORIENTATION [None]
  - DIZZINESS [None]
  - DYSURIA [None]
  - HYPERHIDROSIS [None]
  - NAUSEA [None]
  - SEXUAL DYSFUNCTION [None]
  - TREMOR [None]
